FAERS Safety Report 4431187-2 (Version None)
Quarter: 2004Q3

REPORT INFORMATION
  Report Type: 
  Country: None (occurrence: None)
  Receive Date: 20040817
  Receipt Date: 20040803
  Transmission Date: 20050211
  Serious: Yes (Hospitalization)
  Sender: FDA-Public Use
  Company Number: 2004-0007335

PATIENT
  Age: 48 Year
  Sex: Male
  Weight: 63 kg

DRUGS (11)
  1. VIREAD [Suspect]
     Indication: HIV INFECTION
     Dosage: 300 MG, 1 IN 1 D, ORAL
     Route: 048
     Dates: start: 20040408, end: 20040609
  2. THALIDOMIDE (THALIDOMIDE) [Suspect]
     Indication: CROHN'S DISEASE
     Dosage: ORAL
     Route: 048
     Dates: start: 20040414, end: 20040609
  3. PREDNISOLONE [Concomitant]
  4. METRONIDAZOLE [Concomitant]
  5. MESALAMINE [Concomitant]
  6. FOLIC ACID [Concomitant]
  7. FUROSEMIDE [Concomitant]
  8. LANSOPRAZOLE [Concomitant]
  9. ALFACALCIDOL [Concomitant]
  10. INSULIN [Concomitant]
  11. CALCIUM [Concomitant]

REACTIONS (4)
  - DIALYSIS [None]
  - HAEMOGLOBIN ABNORMAL [None]
  - NEPHRITIS INTERSTITIAL [None]
  - RENAL FAILURE ACUTE [None]
